FAERS Safety Report 7679376-8 (Version None)
Quarter: 2011Q3

REPORT INFORMATION
  Report Type: 
  Country: None (occurrence: None)
  Receive Date: 20110812
  Receipt Date: 20110801
  Transmission Date: 20111222
  Serious: Yes (Hospitalization)
  Sender: FDA-Public Use
  Company Number: US-JNJFOC-20060203170

PATIENT
  Sex: Female
  Weight: 32 kg

DRUGS (3)
  1. PROBIOTIC [Concomitant]
  2. AZATHIOPRINE [Concomitant]
  3. INFLIXIMAB [Suspect]
     Indication: CROHN'S DISEASE
     Dosage: TOTAL 2 DOSES
     Dates: start: 20021227, end: 20050217

REACTIONS (1)
  - FISTULA [None]
